FAERS Safety Report 14326770 (Version 1)
Quarter: 2017Q4

REPORT INFORMATION
  Report Type: Report from Study
  Country: SG (occurrence: SG)
  Receive Date: 20171227
  Receipt Date: 20171227
  Transmission Date: 20180321
  Serious: Yes (Other)
  Sender: FDA-Public Use
  Company Number: SG-ROCHE-2045227

PATIENT

DRUGS (2)
  1. PEG-INTERFERON ALFA 2A [Suspect]
     Active Substance: PEGINTERFERON ALFA-2A
     Indication: HEPATITIS C
     Dosage: PER WEEK
     Route: 058
  2. RIBAVIRIN. [Suspect]
     Active Substance: RIBAVIRIN
     Indication: HEPATITIS C
     Dosage: 1000MG/DAY FOR PATIENTS WEIGHING {75KG AND 1200MG/DAY FOR PATIENTS WEIGHING}75 KG.
     Route: 065

REACTIONS (4)
  - Anaemia [Unknown]
  - Drug intolerance [Unknown]
  - Pancytopenia [Unknown]
  - Depressed mood [Unknown]
